FAERS Safety Report 5735778-8 (Version None)
Quarter: 2008Q2

REPORT INFORMATION
  Report Type: 
  Country: None (occurrence: None)
  Receive Date: 20080513
  Receipt Date: 20080505
  Transmission Date: 20081010
  Serious: Yes (Hospitalization)
  Sender: FDA-Public Use
  Company Number: US-JNJFOC-20080501734

PATIENT
  Sex: Female
  Weight: 68.04 kg

DRUGS (3)
  1. IBUPROFEN [Suspect]
     Indication: PAIN
     Dosage: THREE TO FOUR TIMES A DAY AS NEEDED
  2. VISTORIL [Concomitant]
  3. HYDROCHLOROTHIAZIDE [Concomitant]

REACTIONS (5)
  - FULL BLOOD COUNT ABNORMAL [None]
  - GASTRIC ULCER PERFORATION [None]
  - HYPOKALAEMIA [None]
  - INJURY [None]
  - LOSS OF CONSCIOUSNESS [None]
